FAERS Safety Report 12110822 (Version 1)
Quarter: 2016Q1

REPORT INFORMATION
  Report Type: Spontaneous
  Country: US (occurrence: US)
  Receive Date: 20160224
  Receipt Date: 20160224
  Transmission Date: 20160526
  Serious: No
  Sender: FDA-Public Use
  Company Number: US-JAZZ-2015-US-004686

PATIENT
  Age: 78 Year
  Sex: Male

DRUGS (3)
  1. PRIALT [Suspect]
     Active Substance: ZICONOTIDE ACETATE
     Indication: SPINAL PAIN
     Dosage: UNK ?G, QH
     Route: 037
  2. DILAUDID [Concomitant]
     Active Substance: HYDROMORPHONE HYDROCHLORIDE
     Dosage: 4 MG, Q4-6H, PRN
     Route: 048
  3. SUFENTA [Suspect]
     Active Substance: SUFENTANIL CITRATE
     Indication: SPINAL PAIN
     Dosage: 0.196 ?G, QH
     Route: 037

REACTIONS (2)
  - Device issue [Unknown]
  - Spinal operation [Unknown]

NARRATIVE: CASE EVENT DATE: 20150325
